FAERS Safety Report 8961824 (Version 4)
Quarter: 2013Q1

REPORT INFORMATION
  Report Type: Spontaneous
  Country: JP (occurrence: JP)
  Receive Date: 20121213
  Receipt Date: 20130211
  Transmission Date: 20140127
  Serious: Yes (Hospitalization)
  Sender: FDA-Public Use
  Company Number: JP-ELI_LILLY_AND_COMPANY-JP201209006876

PATIENT
  Age: 65 Year
  Sex: Female

DRUGS (3)
  1. FORTEO [Suspect]
     Dosage: UNK
     Route: 058
     Dates: start: 20120904, end: 20120921
  2. FORTEO [Suspect]
     Dosage: UNK
     Route: 058
     Dates: end: 201211
  3. FORTEO [Suspect]
     Dosage: UNK
     Route: 058

REACTIONS (10)
  - Spinal compression fracture [Unknown]
  - Lumbar vertebral fracture [Unknown]
  - Pruritus [Unknown]
  - Dyschezia [Unknown]
  - Dysuria [Unknown]
  - Abdominal discomfort [Unknown]
  - Headache [Unknown]
  - Myalgia [Unknown]
  - Incorrect storage of drug [Unknown]
  - Weight increased [Unknown]
